FAERS Safety Report 11150186 (Version 1)
Quarter: 2015Q2

REPORT INFORMATION
  Report Type: Spontaneous
  Country: GB (occurrence: GB)
  Receive Date: 20150529
  Receipt Date: 20150529
  Transmission Date: 20150821
  Serious: Yes (Other)
  Sender: FDA-Public Use
  Company Number: PHHY2015GB062121

PATIENT
  Sex: Female

DRUGS (2)
  1. LEVOTHYROXINE [Concomitant]
     Active Substance: LEVOTHYROXINE
     Indication: PRODUCT USED FOR UNKNOWN INDICATION
     Route: 065
  2. BISOPROLOL [Suspect]
     Active Substance: BISOPROLOL
     Indication: HEART RATE ABNORMAL
     Dosage: 2.5 MG, QD
     Route: 048
     Dates: start: 20130901

REACTIONS (10)
  - Malaise [Unknown]
  - Peripheral coldness [Unknown]
  - Gait disturbance [Unknown]
  - Abdominal pain [Unknown]
  - Fatigue [Unknown]
  - Pruritus [Unknown]
  - Muscle disorder [Unknown]
  - Suicidal ideation [Not Recovered/Not Resolved]
  - Poor peripheral circulation [Unknown]
  - Dry eye [Unknown]
